FAERS Safety Report 12326684 (Version 1)
Quarter: 2016Q2

REPORT INFORMATION
  Report Type: Spontaneous
  Country: ES (occurrence: ES)
  Receive Date: 20160503
  Receipt Date: 20160503
  Transmission Date: 20160815
  Serious: Yes (Other)
  Sender: FDA-Public Use
  Company Number: PHHY2016ES059958

PATIENT
  Age: 84 Year
  Sex: Female

DRUGS (3)
  1. PROMETAX [Suspect]
     Active Substance: RIVASTIGMINE
     Dosage: UNSPECIFIED DOSE REDUCED
     Route: 065
  2. PROMETAX [Suspect]
     Active Substance: RIVASTIGMINE
     Dosage: 9.5 MG, UNK
     Route: 065
     Dates: start: 201602
  3. PROMETAX [Suspect]
     Active Substance: RIVASTIGMINE
     Indication: PRODUCT USED FOR UNKNOWN INDICATION
     Dosage: 9.5 MG, UNK
     Route: 065
     Dates: start: 201509

REACTIONS (3)
  - Nausea [Recovered/Resolved]
  - Depressed level of consciousness [Recovered/Resolved]
  - Abdominal distension [Recovered/Resolved]

NARRATIVE: CASE EVENT DATE: 201509
